FAERS Safety Report 6375945-6 (Version None)
Quarter: 2009Q3

REPORT INFORMATION
  Report Type: 
  Country: None (occurrence: None)
  Receive Date: 20090918
  Receipt Date: 20090903
  Transmission Date: 20100115
  Serious: Yes (Hospitalization)
  Sender: FDA-Public Use
  Company Number: 2009PV000068

PATIENT
  Age: 18 Year
  Sex: Female

DRUGS (1)
  1. DEPOCYT [Suspect]
     Dosage: 50 MG

REACTIONS (1)
  - POST LUMBAR PUNCTURE SYNDROME [None]
